FAERS Safety Report 16633496 (Version 1)
Quarter: 2019Q3

REPORT INFORMATION
  Report Type: Spontaneous
  Country: US (occurrence: US)
  Receive Date: 20190725
  Receipt Date: 20190725
  Transmission Date: 20191004
  Serious: Yes (Other)
  Sender: FDA-Public Use
  Company Number: None

PATIENT
  Age: 30 Year
  Sex: Male
  Weight: 103.5 kg

DRUGS (6)
  1. VYVANSE [Concomitant]
     Active Substance: LISDEXAMFETAMINE DIMESYLATE
  2. MAGNESIUM [Concomitant]
     Active Substance: MAGNESIUM
  3. SYMBICORT [Concomitant]
     Active Substance: BUDESONIDE\FORMOTEROL FUMARATE DIHYDRATE
  4. ARIMIDEX (GENERIC) ANASTROZOLE [Suspect]
     Active Substance: ANASTROZOLE
     Indication: INFERTILITY MALE
     Dates: start: 20190601, end: 20190624
  5. ALLEGRA [Concomitant]
     Active Substance: FEXOFENADINE HYDROCHLORIDE
  6. MULTIVITAMINS [Concomitant]
     Active Substance: VITAMINS

REACTIONS (4)
  - Loss of personal independence in daily activities [None]
  - Suicidal ideation [None]
  - Anger [None]
  - Anxiety [None]

NARRATIVE: CASE EVENT DATE: 20190624
